FAERS Safety Report 5578063-X (Version None)
Quarter: 2007Q4

REPORT INFORMATION
  Report Type: 
  Country: None (occurrence: None)
  Receive Date: 20071231
  Receipt Date: 20071225
  Transmission Date: 20080405
  Serious: Yes (Other)
  Sender: FDA-Public Use
  Company Number: IL-ROCHE-535503

PATIENT
  Age: 49 Year
  Sex: Female

DRUGS (2)
  1. PEGASYS [Suspect]
     Dosage: DOSAGE REGIMEN: 180
     Route: 065
     Dates: start: 20070801
  2. COPEGUS [Concomitant]
     Dosage: DOSAGE REGIMEN: 1000
     Dates: start: 20070801

REACTIONS (2)
  - RETINAL TELANGIECTASIA [None]
  - VISION BLURRED [None]
